FAERS Safety Report 9308656 (Version 1)
Quarter: 2013Q2

REPORT INFORMATION
  Report Type: Spontaneous
  Country: GB (occurrence: GB)
  Receive Date: 20130524
  Receipt Date: 20130524
  Transmission Date: 20140414
  Serious: Yes (Other)
  Sender: FDA-Public Use
  Company Number: GB-JNJFOC-20130510849

PATIENT
  Age: 51 Year
  Sex: Male
  Weight: 73.47 kg

DRUGS (2)
  1. PSEUDOEPHEDRINE HYDROCHLORIDE [Suspect]
     Route: 048
  2. PSEUDOEPHEDRINE HYDROCHLORIDE [Suspect]
     Indication: NASAL CONGESTION
     Route: 048
     Dates: start: 20130426, end: 20130426

REACTIONS (1)
  - Erectile dysfunction [Recovered/Resolved]
